FAERS Safety Report 10447560 (Version 1)
Quarter: 2014Q3

REPORT INFORMATION
  Report Type: Spontaneous
  Country: US (occurrence: US)
  Receive Date: 20140911
  Receipt Date: 20140911
  Transmission Date: 20150326
  Serious: No
  Sender: FDA-Public Use
  Company Number: US-BEH-2014042812

PATIENT
  Sex: Female
  Weight: 74 kg

DRUGS (12)
  1. EPIPEN [Concomitant]
     Active Substance: EPINEPHRINE
  2. ALL OTHER THERAPEUTIC PRODUCTS [Concomitant]
     Active Substance: UNSPECIFIED INGREDIENT
  3. LOSARTAN [Concomitant]
     Active Substance: LOSARTAN
  4. ACETAMINOPHEN. [Concomitant]
     Active Substance: ACETAMINOPHEN
  5. ADVAIR HFA [Concomitant]
     Active Substance: FLUTICASONE PROPIONATE\SALMETEROL XINAFOATE
  6. ZEMAIRA [Suspect]
     Active Substance: .ALPHA.1-PROTEINASE INHIBITOR HUMAN
     Indication: ALPHA-1 ANTI-TRYPSIN DEFICIENCY
     Route: 042
  7. DIPHENHYDRAMINE [Concomitant]
     Active Substance: DIPHENHYDRAMINE
  8. HEPARIN [Concomitant]
     Active Substance: HEPARIN SODIUM
  9. CLARITHROMYCIN. [Concomitant]
     Active Substance: CLARITHROMYCIN
  10. SODIUM CHLORIDE. [Concomitant]
     Active Substance: SODIUM CHLORIDE
  11. PREDNISONE. [Concomitant]
     Active Substance: PREDNISONE
  12. CRESTOR [Concomitant]
     Active Substance: ROSUVASTATIN CALCIUM

REACTIONS (2)
  - Rash [Unknown]
  - Pruritus [Unknown]
